FAERS Safety Report 5280649-7 (Version None)
Quarter: 2007Q1

REPORT INFORMATION
  Report Type: 
  Country: None (occurrence: None)
  Receive Date: 20061221
  Receipt Date: 20061011
  Transmission Date: 20070707
  Serious: Yes (Death)
  Sender: FDA-Public Use
  Company Number: US-CVT-061870

PATIENT
  Age: 76 Year
  Sex: Female

DRUGS (13)
  1. RANEXA [Suspect]
     Indication: ANGINA PECTORIS
     Dosage: 500 MG, BID, ORAL
     Route: 048
     Dates: start: 20060903
  2. NITROGLYCERIN [Concomitant]
  3. METOPROLOL /00376901/ (METOPROLOL) [Concomitant]
  4. ASPIRIN [Concomitant]
  5. FISH OIL (FISH OIL) [Concomitant]
  6. LEVOTHYROXINE /00068001/ (LEVOTHYROXINE) [Concomitant]
  7. PRAVACHOL [Concomitant]
  8. RENAGEL [Concomitant]
  9. MULTIVITAMINS (ASCORBIC ACID, ERGOCALCIFEROL, FOLIC ACID, NICOTINAMIDE [Concomitant]
  10. EPOGEN [Concomitant]
  11. INSULIN /00030501/ (INSULIN) [Concomitant]
  12. CALCIUM CARBONATE (CALCIUM CARBONATE) [Concomitant]
  13. TESSALON [Concomitant]

REACTIONS (2)
  - CARDIAC DEATH [None]
  - VENTRICULAR FIBRILLATION [None]
